FAERS Safety Report 4501650-4 (Version None)
Quarter: 2004Q4

REPORT INFORMATION
  Report Type: 
  Country: None (occurrence: None)
  Receive Date: 20041109
  Receipt Date: 20041026
  Transmission Date: 20050328
  Serious: No
  Sender: FDA-Public Use
  Company Number: 2004AC00665

PATIENT
  Age: 52 Year
  Sex: Female

DRUGS (3)
  1. LIDOCAINE [Suspect]
     Indication: LOCAL ANAESTHESIA
     Dosage: 8 ML PNEU
  2. PRILOCAINE [Suspect]
     Indication: LOCAL ANAESTHESIA
  3. HYALURONIDASE [Suspect]
     Indication: LOCAL ANAESTHESIA
     Dosage: 300 IU PNEU

REACTIONS (3)
  - CONJUNCTIVAL HAEMORRHAGE [None]
  - LYMPHANGIECTASIA [None]
  - POST PROCEDURAL COMPLICATION [None]
